FAERS Safety Report 4982472-7 (Version None)
Quarter: 2006Q2

REPORT INFORMATION
  Report Type: 
  Country: None (occurrence: None)
  Receive Date: 20060421
  Receipt Date: 20060413
  Transmission Date: 20061013
  Serious: Yes (Other)
  Sender: FDA-Public Use
  Company Number: 2006051220

PATIENT
  Age: 2 Year
  Sex: Female
  Weight: 13.1543 kg

DRUGS (1)
  1. SUDAFED 12 HOUR [Suspect]
     Indication: ACCIDENTAL EXPOSURE
     Dosage: SUCKED ON TWO TABLETS ONCE, ORAL
     Route: 048
     Dates: start: 20060413, end: 20060413

REACTIONS (3)
  - ACCIDENTAL DRUG INTAKE BY CHILD [None]
  - GENERALISED ERYTHEMA [None]
  - LETHARGY [None]
